FAERS Safety Report 9168691 (Version 1)
Quarter: 2013Q1

REPORT INFORMATION
  Report Type: Spontaneous
  Country: US (occurrence: US)
  Receive Date: 20130318
  Receipt Date: 20130318
  Transmission Date: 20140127
  Serious: No
  Sender: FDA-Public Use
  Company Number: US-009507513-1302USA013481

PATIENT
  Age: 19 Month
  Sex: Female

DRUGS (9)
  1. AFRIN [Suspect]
     Indication: REGIONAL CHEMOTHERAPY
  2. MELPHALAN [Concomitant]
     Indication: RETINOBLASTOMA
  3. ASPIRIN [Concomitant]
     Indication: THROMBOSIS PROPHYLAXIS
  4. HEPARIN [Concomitant]
     Indication: PRODUCT USED FOR UNKNOWN INDICATION
  5. DIPHENHYDRAMINE HYDROCHLORIDE [Suspect]
     Indication: HYPOTENSION
  6. HYDROCORTISONE [Concomitant]
     Indication: HYPOTENSION
  7. PHENYLEPHRINE [Suspect]
     Indication: PRODUCT USED FOR UNKNOWN INDICATION
  8. ALBUTEROL [Suspect]
     Indication: PROPHYLAXIS AGAINST BRONCHOSPASM
  9. DEXAMETHASONE [Concomitant]
     Indication: PROPHYLAXIS

REACTIONS (3)
  - Hypertension [Recovered/Resolved]
  - Cerebral vasoconstriction [Recovered/Resolved]
  - Off label use [Recovered/Resolved]
